FAERS Safety Report 20403519 (Version 1)
Quarter: 2022Q1

REPORT INFORMATION
  Report Type: Spontaneous
  Country: CN (occurrence: CN)
  Receive Date: 20220131
  Receipt Date: 20220131
  Transmission Date: 20220424
  Serious: Yes (Life-Threatening, Hospitalization)
  Sender: FDA-Public Use
  Company Number: CN-BAXTER-2022BAX001834

PATIENT
  Age: 46 Year
  Sex: Female
  Weight: 51 kg

DRUGS (6)
  1. CYCLOPHOSPHAMIDE [Suspect]
     Active Substance: CYCLOPHOSPHAMIDE
     Indication: T-cell type acute leukaemia
     Dosage: CYCLOPHOSPHAMIDE FOR INJECTION 1.1G + 0.9% SODIUM CHLORIDE INJECTION 500ML IVGTT AT ONE TIME
     Route: 041
     Dates: start: 20211224, end: 20211224
  2. SODIUM CHLORIDE [Suspect]
     Active Substance: SODIUM CHLORIDE
     Indication: Medication dilution
     Dosage: CYCLOPHOSPHAMIDE FOR INJECTION (1.1 G) DILUTED WITH SOLVENT 0.9% SODIUM CHLORIDE INJECTION (500 ML)
     Route: 041
     Dates: start: 20211224
  3. SODIUM CHLORIDE [Suspect]
     Active Substance: SODIUM CHLORIDE
     Dosage: VINCRISTINE SULFATE FOR INJECTION (2 MG) DILUTED WITH SOLVENT 0.9% NS INJECTION (100 ML)
     Route: 041
     Dates: start: 20211224
  4. SODIUM CHLORIDE [Suspect]
     Active Substance: SODIUM CHLORIDE
     Dosage: DAUNORUBICIN HYDROCHLORIDE FOR INJECTION (60 MG) DILUTED WITH SOLVENT 0.9% NS INJECTION (250 ML)
     Route: 041
     Dates: start: 20211224
  5. VINCRISTINE SULFATE [Suspect]
     Active Substance: VINCRISTINE SULFATE
     Indication: T-cell type acute leukaemia
     Dosage: VINCRISTINE SULFATE FOR INJECTION (2 MG) DILUTED WITH 0.9% SODIUM CHLORIDE INJECTION (100 ML)
     Route: 041
     Dates: start: 20211224, end: 20211224
  6. DAUNORUBICIN HYDROCHLORIDE [Suspect]
     Active Substance: DAUNORUBICIN HYDROCHLORIDE
     Indication: T-cell type acute leukaemia
     Dosage: DAUNORUBICIN HYDROCHLORIDE FOR INJECTION (60 MG) DILUTED WITH 0.9% NS INJECTION (250 ML)
     Route: 041
     Dates: start: 20211224, end: 20211226

REACTIONS (1)
  - Myelosuppression [Recovering/Resolving]

NARRATIVE: CASE EVENT DATE: 20211225
